FAERS Safety Report 5224881-7 (Version None)
Quarter: 2007Q1

REPORT INFORMATION
  Report Type: 
  Country: None (occurrence: None)
  Receive Date: 20070126
  Receipt Date: 20070116
  Transmission Date: 20070707
  Serious: Yes (Other)
  Sender: FDA-Public Use
  Company Number: CHPA2007US01132

PATIENT
  Sex: Female
  Weight: 68 kg

DRUGS (1)
  1. EXCEDRIN (MIGRAINE) [Suspect]
     Indication: HEADACHE
     Dosage: 2 DF, ORAL
     Route: 048
     Dates: start: 20070116, end: 20070116

REACTIONS (3)
  - LIP DISCOLOURATION [None]
  - LIP SWELLING [None]
  - PARAESTHESIA ORAL [None]
